FAERS Safety Report 23665181 (Version 1)
Quarter: 2024Q1

REPORT INFORMATION
  Report Type: Spontaneous
  Country: FR (occurrence: FR)
  Receive Date: 20240322
  Receipt Date: 20240322
  Transmission Date: 20240410
  Serious: Yes (Life-Threatening, Other)
  Sender: FDA-Public Use
  Company Number: None

PATIENT
  Age: 70 Year
  Sex: Male
  Weight: 80 kg

DRUGS (9)
  1. CASPOFUNGIN ACETATE [Suspect]
     Active Substance: CASPOFUNGIN ACETATE
     Indication: Small intestinal perforation
     Dosage: 70 MILLIGRAM, QD
     Route: 042
     Dates: start: 20240112, end: 20240131
  2. MEROPENEM [Suspect]
     Active Substance: MEROPENEM
     Indication: Small intestinal perforation
     Dosage: 2G OVER 30 MIN X3/DAY
     Route: 042
     Dates: start: 20240112, end: 20240125
  3. PIPERACILLIN SODIUM\TAZOBACTAM SODIUM [Suspect]
     Active Substance: PIPERACILLIN SODIUM\TAZOBACTAM SODIUM
     Indication: Small intestinal perforation
     Dosage: 16G/DAY
     Route: 042
     Dates: start: 20240103, end: 20240111
  4. LINEZOLID [Suspect]
     Active Substance: LINEZOLID
     Indication: Small intestinal perforation
     Dosage: 600MGX2/DAY
     Route: 042
     Dates: start: 20240112, end: 20240125
  5. FLUCONAZOLE [Suspect]
     Active Substance: FLUCONAZOLE
     Indication: Small intestinal perforation
     Dosage: 400MG/DAY
     Route: 042
     Dates: start: 20240103, end: 20240111
  6. CISATRACURIUM BESYLATE [Concomitant]
     Active Substance: CISATRACURIUM BESYLATE
     Indication: Sedation
     Route: 042
     Dates: start: 20240103
  7. KETAMINE HYDROCHLORIDE [Concomitant]
     Active Substance: KETAMINE HYDROCHLORIDE
     Indication: Sedation
     Dosage: 1000MG/DAY
     Route: 042
     Dates: start: 20240103
  8. PANTOPRAZOLE SODIUM [Concomitant]
     Active Substance: PANTOPRAZOLE SODIUM
     Indication: Product used for unknown indication
     Dosage: 40MGX2/DAY
     Route: 042
     Dates: start: 20240103
  9. SUFENTANIL CITRATE [Concomitant]
     Active Substance: SUFENTANIL CITRATE
     Indication: Sedation
     Route: 042
     Dates: start: 20240103

REACTIONS (1)
  - Drug reaction with eosinophilia and systemic symptoms [Recovering/Resolving]

NARRATIVE: CASE EVENT DATE: 20240131
